FAERS Safety Report 8557880 (Version 26)
Quarter: 2014Q3

REPORT INFORMATION
  Report Type: Report from Study
  Country: CA (occurrence: CA)
  Receive Date: 20120511
  Receipt Date: 20140929
  Transmission Date: 20150326
  Serious: Yes (Death, Hospitalization, Other)
  Sender: FDA-Public Use
  Company Number: PHHY2012CA039584

PATIENT
  Age: 89 Year
  Sex: Female

DRUGS (5)
  1. SANDOSTATIN LAR DEPOT [Suspect]
     Active Substance: OCTREOTIDE ACETATE
     Dosage: 30 MG, ONCE A MONTH
     Route: 030
  2. SANDOSTATIN LAR DEPOT [Suspect]
     Active Substance: OCTREOTIDE ACETATE
     Dosage: 20 MG, ONCE A MONTH
     Route: 030
  3. SANDOSTATIN LAR DEPOT [Suspect]
     Active Substance: OCTREOTIDE ACETATE
     Indication: CARCINOID TUMOUR
     Dosage: 30 MG, EVERY 4 WEEKS
     Route: 030
     Dates: start: 20060302
  4. SANDOSTATIN LAR DEPOT [Suspect]
     Active Substance: OCTREOTIDE ACETATE
     Dosage: 30 MG, ONCE A MONTH
     Route: 030
     Dates: end: 2014
  5. SANDOSTATIN LAR DEPOT [Suspect]
     Active Substance: OCTREOTIDE ACETATE
     Dosage: 30 MG, QMO (EVERY 4 WEEKS)
     Route: 030

REACTIONS (16)
  - Death [Fatal]
  - Heart rate decreased [Unknown]
  - Decreased appetite [Unknown]
  - Dizziness [Unknown]
  - Syncope [Recovering/Resolving]
  - Hyperhidrosis [Recovering/Resolving]
  - Blood pressure diastolic decreased [Unknown]
  - Mobility decreased [Unknown]
  - Malaise [Recovering/Resolving]
  - Blood pressure systolic increased [Unknown]
  - Wound [Unknown]
  - Anaemia [Unknown]
  - Ocular hyperaemia [Unknown]
  - Fatigue [Unknown]
  - Herpes zoster [Unknown]
  - Asthenia [Unknown]

NARRATIVE: CASE EVENT DATE: 201409
